FAERS Safety Report 8895516 (Version 1)
Quarter: 2012Q4

REPORT INFORMATION
  Report Type: 
  Country: US (occurrence: US)
  Receive Date: 20121108
  Receipt Date: 20121108
  Transmission Date: 20130627
  Serious: Yes (Other)
  Sender: FDA-Public Use
  Company Number: US-GLAXOSMITHKLINE-A0765900A

PATIENT
  Age: 58 Year
  Sex: Male

DRUGS (4)
  1. REQUIP XL [Suspect]
     Indication: PARKINSON^S DISEASE
     Dosage: 4MG In the morning
     Route: 048
     Dates: start: 20090121
  2. OMEGA 3 FATTY ACID [Concomitant]
  3. CO-Q10 [Concomitant]
  4. VITAMIN D CALCIUM [Concomitant]

REACTIONS (3)
  - Hypotension [Recovered/Resolved]
  - Malaise [Unknown]
  - Syncope [Unknown]
